FAERS Safety Report 8852727 (Version 2)
Quarter: 2013Q4

REPORT INFORMATION
  Report Type: Spontaneous
  Country: US (occurrence: US)
  Receive Date: 20121022
  Receipt Date: 20131024
  Transmission Date: 20140711
  Serious: Yes (Other)
  Sender: FDA-Public Use
  Company Number: US-ASTRAZENECA-2012SE78992

PATIENT
  Age: 74 Year
  Sex: Female
  Weight: 72.1 kg

DRUGS (35)
  1. SYMBICORT PMDI [Suspect]
     Dosage: 80/4.5 MCG,  TWO PUFFS BID
     Route: 055
  2. PRILOSEC [Suspect]
     Route: 048
  3. PRILOSEC [Suspect]
     Dosage: GENERIC
     Route: 048
  4. ANOTHER NASAL SPRAY [Suspect]
     Route: 045
  5. LYRICA [Concomitant]
  6. ULTRAM [Concomitant]
  7. EFFEXOR XR [Concomitant]
     Indication: DEPRESSION
     Dosage: 75MG (2) DAILY
     Dates: start: 2010
  8. ZOCOR [Concomitant]
     Indication: BLOOD CHOLESTEROL ABNORMAL
  9. XANAX [Concomitant]
     Indication: ANXIETY
     Dosage: 50/500 PRN
  10. CATAPRES [Concomitant]
  11. CLONIDINE [Concomitant]
     Indication: BLOOD PRESSURE ABNORMAL
  12. GABAPENTIN [Concomitant]
     Indication: AFFECTIVE DISORDER
  13. ALENDRONATE [Concomitant]
     Indication: ARTHRITIS
  14. VAGIFEM [Concomitant]
     Indication: VAGINAL DISORDER
     Dosage: 25MCG WEEK
     Dates: start: 2011
  15. VOLTAREN GEL [Concomitant]
     Indication: PAIN
     Dosage: PRN
     Route: 061
     Dates: start: 201308
  16. LIDODERM PATCHES [Concomitant]
     Indication: BACK PAIN
  17. MIRALAX [Concomitant]
     Indication: CONSTIPATION
  18. GLUCOSAMINE SULFATE [Concomitant]
     Indication: ARTHRITIS
     Dosage: 1000 (2) DAILY
  19. GLUCOSAMINE SULFATE [Concomitant]
     Indication: NEUROPATHY PERIPHERAL
     Dosage: 1000 (2) DAILY
  20. VITAMIN D [Concomitant]
     Indication: BONE DISORDER
     Dosage: 1000 UNITS, DAILY
  21. FIBERCHOICE [Concomitant]
     Indication: CONSTIPATION
  22. CALCIUM W/D [Concomitant]
     Indication: BONE DISORDER
  23. MULTIPLE VITAMINS [Concomitant]
  24. TYLENOL EXTRA STRENGTH [Concomitant]
  25. TYLENOL ARTHRITIS [Concomitant]
     Indication: ARTHRITIS
  26. FISH OIL [Concomitant]
  27. AREDS 2 [Concomitant]
     Indication: MACULAR DEGENERATION
     Dosage: 4 DAILY
     Dates: start: 2012
  28. MAX FORMULA VITAMINS [Concomitant]
  29. MIRTAZAPINE [Concomitant]
     Indication: SLEEP DISORDER
     Dosage: 1 DAILY
  30. MIRTAZAPINE [Concomitant]
     Indication: ANXIETY
     Dosage: 1 DAILY
  31. NASAL CROM [Concomitant]
     Indication: RHINORRHOEA
     Route: 045
  32. PROAIR [Concomitant]
     Indication: RESPIRATORY DISORDER
     Route: 045
  33. AZELASTINE HCL [Concomitant]
     Indication: RHINORRHOEA
     Dosage: .1 % PRN
     Route: 045
  34. TRAMADOL [Concomitant]
     Dosage: 50MG (2) TID
  35. WELLBUTRIN [Concomitant]
     Indication: DEPRESSION
     Dosage: 1 DAILY

REACTIONS (14)
  - Hiatus hernia [Unknown]
  - Macular degeneration [Unknown]
  - Bladder prolapse [Unknown]
  - Uterine prolapse [Unknown]
  - Cataract [Unknown]
  - Cataract [Unknown]
  - Neuropathy peripheral [Unknown]
  - Osteoarthritis [Unknown]
  - Dry eye [Unknown]
  - Chest discomfort [Recovering/Resolving]
  - Hot flush [Recovered/Resolved]
  - Constipation [Unknown]
  - Anxiety [Recovering/Resolving]
  - Depression [Unknown]
